FAERS Safety Report 8600517 (Version 4)
Quarter: 2013Q1

REPORT INFORMATION
  Report Type: Spontaneous
  Country: US (occurrence: US)
  Receive Date: 20120606
  Receipt Date: 20130108
  Transmission Date: 20140127
  Serious: Yes (Other)
  Sender: FDA-Public Use
  Company Number: US-PFIZER INC-2012132744

PATIENT
  Age: 72 Year
  Sex: Female
  Weight: 61.22 kg

DRUGS (16)
  1. REVATIO [Suspect]
     Indication: PULMONARY ARTERIAL HYPERTENSION
     Dosage: 20 MG, 3X/DAY
     Route: 048
     Dates: start: 201201, end: 201210
  2. REVATIO [Suspect]
     Indication: EMPHYSEMA
  3. PREDNISONE [Suspect]
     Indication: PNEUMONITIS
     Dosage: MONTHLY
  4. PREDNISONE [Suspect]
     Dosage: 50 MG, SINGLE
     Dates: start: 20120531, end: 20120531
  5. PREDNISONE [Suspect]
     Dosage: 40 MG, SINGLE
     Dates: start: 20120601, end: 20120601
  6. PREDNISONE [Suspect]
     Dosage: 30 MG, SINGLE
     Dates: start: 20120602, end: 20120602
  7. PREDNISONE [Suspect]
     Dosage: UNK
  8. COMBIVENT [Concomitant]
     Indication: EMPHYSEMA
     Dosage: 2 PUFFS, EVERY 4 HOURS
     Route: 055
  9. COMBIVENT [Concomitant]
     Dosage: UNK
  10. SPIRIVA [Concomitant]
     Indication: EMPHYSEMA
     Dosage: UNK, DAILY IN THE MORNING
  11. SPIRIVA [Concomitant]
     Indication: CHRONIC OBSTRUCTIVE PULMONARY DISEASE
  12. ADVAIR DISKUS [Concomitant]
     Indication: EMPHYSEMA
     Dosage: 2 PUFFS, 2X/DAY
     Route: 055
  13. SPIRIVA INHALER [Concomitant]
     Indication: CHRONIC OBSTRUCTIVE PULMONARY DISEASE
     Dosage: UNK, 1X/DAY (DAILY)
  14. ADVAIR [Concomitant]
     Dosage: UNK, 2X/DAY (BID)
  15. LASIX [Concomitant]
     Indication: CARDIAC DISORDER
     Dosage: UNK
  16. LASIX [Concomitant]
     Indication: BLOOD PRESSURE ABNORMAL

REACTIONS (11)
  - Dyspnoea [Unknown]
  - Dizziness [Recovering/Resolving]
  - Feeling abnormal [Recovering/Resolving]
  - Somnolence [Recovering/Resolving]
  - Headache [Recovering/Resolving]
  - Hot flush [Recovering/Resolving]
  - Joint swelling [Unknown]
  - Influenza [Unknown]
  - Dyspepsia [Not Recovered/Not Resolved]
  - Off label use [Recovered/Resolved]
  - Drug ineffective [Unknown]
